FAERS Safety Report 25342476 (Version 1)
Quarter: 2025Q2

REPORT INFORMATION
  Report Type: Spontaneous
  Country: US (occurrence: US)
  Receive Date: 20250521
  Receipt Date: 20250521
  Transmission Date: 20250716
  Serious: No
  Sender: CATALYST PHARMA
  Company Number: US-CATALYST PHARMACEUTICALS-US-CATA-25-00405

PATIENT
  Sex: Male
  Weight: 43.891 kg

DRUGS (6)
  1. AGAMREE [Suspect]
     Active Substance: VAMOROLONE
     Indication: Duchenne muscular dystrophy
     Dosage: 6 ML DAILY
     Route: 048
     Dates: start: 20240830, end: 2024
  2. AGAMREE [Suspect]
     Active Substance: VAMOROLONE
     Dosage: 6.6 ML ONCE A DAY
     Route: 048
     Dates: start: 20241218
  3. CARVEDILOL [Concomitant]
     Active Substance: CARVEDILOL
     Indication: Cardiovascular disorder
     Route: 065
  4. DUVYZAT [Concomitant]
     Active Substance: GIVINOSTAT
     Indication: Muscular dystrophy
     Dosage: 5 ML TWICE A DAY
     Route: 048
  5. EPLERENONE [Concomitant]
     Active Substance: EPLERENONE
     Indication: Cardiovascular disorder
     Dosage: 25 MG DAILY
     Route: 065
  6. PERINDOPRIL [Concomitant]
     Active Substance: PERINDOPRIL
     Indication: Cardiovascular disorder
     Dosage: 4 MG DAILY
     Route: 065

REACTIONS (1)
  - Rash [Not Recovered/Not Resolved]
